FAERS Safety Report 14351863 (Version 1)
Quarter: 2018Q1

REPORT INFORMATION
  Report Type: Spontaneous
  Country: US (occurrence: US)
  Receive Date: 20180104
  Receipt Date: 20180104
  Transmission Date: 20180509
  Serious: Yes (Hospitalization, Other)
  Sender: FDA-Public Use
  Company Number: US-INDIVIOR LIMITED-INDV-107260-2017

PATIENT
  Age: 48 Year
  Sex: Male

DRUGS (3)
  1. SUBUTEX [Suspect]
     Active Substance: BUPRENORPHINE HYDROCHLORIDE
     Indication: DRUG DEPENDENCE
     Dosage: 8 MG, Q8H (8MG EVERY 8 HOURS)
     Route: 065
  2. SUBUTEX [Suspect]
     Active Substance: BUPRENORPHINE HYDROCHLORIDE
     Indication: PROCEDURAL PAIN
     Dosage: 8 MG, Q8H, (8MG EVERY 8 HOURS)
     Route: 065
  3. BUPIVACAINE. [Concomitant]
     Active Substance: BUPIVACAINE
     Indication: EPIDURAL ANAESTHESIA
     Dosage: 0.05% WITH A BASAL RATE OF 6CC AND DEMANDS OF 6CC EVERY 30 MINUTES
     Route: 008

REACTIONS (5)
  - Oesophageal adenocarcinoma [Unknown]
  - Discomfort [Unknown]
  - Product use issue [Unknown]
  - Procedural pain [Unknown]
  - Drug withdrawal syndrome [Recovered/Resolved]
